FAERS Safety Report 15048392 (Version 2)
Quarter: 2018Q2

REPORT INFORMATION
  Report Type: Spontaneous
  Country: AU (occurrence: AU)
  Receive Date: 20180622
  Receipt Date: 20180625
  Transmission Date: 20180711
  Serious: Yes (Death)
  Sender: FDA-Public Use
  Company Number: AU-ROCHE-2123756

PATIENT
  Sex: Male

DRUGS (1)
  1. RITUXIMAB. [Suspect]
     Active Substance: RITUXIMAB
     Indication: HAIRY CELL LEUKAEMIA
     Route: 065

REACTIONS (3)
  - Off label use [Fatal]
  - Death [Fatal]
  - Intentional product use issue [Fatal]
